FAERS Safety Report 14822295 (Version 2)
Quarter: 2018Q2

REPORT INFORMATION
  Report Type: Spontaneous
  Country: GB (occurrence: FR)
  Receive Date: 20180427
  Receipt Date: 20180502
  Transmission Date: 20180711
  Serious: Yes (Hospitalization)
  Sender: FDA-Public Use
  Company Number: FR-FRESENIUS KABI-FK201805000

PATIENT
  Age: 10 Year
  Sex: Male
  Weight: 25 kg

DRUGS (25)
  1. GLUCOSE (MANUFACTURER UNKNOWN) [Suspect]
     Active Substance: DEXTROSE
     Indication: PARENTERAL NUTRITION
     Route: 042
     Dates: start: 201803
  2. SODIUM CHLORIDE FRESENIUS KABI (NOT SPECIFIED) [Suspect]
     Active Substance: SODIUM CHLORIDE
     Indication: PARENTERAL NUTRITION
     Route: 042
     Dates: start: 201803
  3. POTASSIUM CHLORIDE (NOT SPECIFIED) [Suspect]
     Active Substance: POTASSIUM CHLORIDE
     Route: 042
     Dates: start: 201803
  4. SOLUVIT [Suspect]
     Active Substance: VITAMINS
     Indication: PARENTERAL NUTRITION
     Route: 042
     Dates: start: 201803
  5. SOLUVIT [Suspect]
     Active Substance: VITAMINS
     Route: 042
     Dates: start: 201803
  6. VITAMIN K1 [Suspect]
     Active Substance: PHYTONADIONE
     Indication: PARENTERAL NUTRITION
     Route: 042
     Dates: start: 201803
  7. MAGNESIUM CHLORIDE. [Suspect]
     Active Substance: MAGNESIUM CHLORIDE
     Route: 042
     Dates: start: 201803
  8. CALCIUM GLUCONATE. [Suspect]
     Active Substance: CALCIUM GLUCONATE
     Indication: PARENTERAL NUTRITION
     Route: 042
     Dates: start: 201803
  9. CALCIUM GLUCONATE. [Suspect]
     Active Substance: CALCIUM GLUCONATE
     Route: 042
     Dates: start: 201803
  10. GLUCOSE (MANUFACTURER UNKNOWN) [Suspect]
     Active Substance: DEXTROSE
     Route: 042
     Dates: start: 201803
  11. PHOCYTAN [Suspect]
     Active Substance: .ALPHA.-GLUCOSE-1-PHOSPHATE
     Route: 042
     Dates: start: 201803
  12. RANITIDINE. [Suspect]
     Active Substance: RANITIDINE
     Indication: PARENTERAL NUTRITION
     Route: 042
     Dates: start: 201803
  13. VINTENE [Suspect]
     Active Substance: AMINO ACIDS
     Indication: PARENTERAL NUTRITION
     Route: 042
     Dates: start: 201803
  14. SODIUM CHLORIDE FRESENIUS KABI (NOT SPECIFIED) [Suspect]
     Active Substance: SODIUM CHLORIDE
     Route: 042
     Dates: start: 201803
  15. RANITIDINE. [Suspect]
     Active Substance: RANITIDINE
     Route: 042
     Dates: start: 201803
  16. MAGNESIUM CHLORIDE. [Suspect]
     Active Substance: MAGNESIUM CHLORIDE
     Indication: PRODUCT USED FOR UNKNOWN INDICATION
     Route: 042
     Dates: start: 201803
  17. VINTENE [Suspect]
     Active Substance: AMINO ACIDS
     Route: 042
     Dates: start: 201803
  18. VITALIPID INFANT [Suspect]
     Active Substance: ERGOCALCIFEROL\PHYTONADIONE\TOCOPHEROL\VITAMIN A PALMITATE
     Route: 042
     Dates: start: 201803
  19. POTASSIUM CHLORIDE (NOT SPECIFIED) [Suspect]
     Active Substance: POTASSIUM CHLORIDE
     Indication: PARENTERAL NUTRITION
     Route: 042
     Dates: start: 201803
  20. VITALIPID INFANT [Suspect]
     Active Substance: ERGOCALCIFEROL\PHYTONADIONE\TOCOPHEROL\VITAMIN A PALMITATE
     Indication: PARENTERAL NUTRITION
     Route: 042
     Dates: start: 201803
  21. SELENIUM [Suspect]
     Active Substance: SELENIUM
     Indication: PARENTERAL NUTRITION
     Route: 042
     Dates: start: 201803
  22. HUMIRA [Concomitant]
     Active Substance: ADALIMUMAB
     Indication: PRODUCT USED FOR UNKNOWN INDICATION
     Route: 065
  23. SELENIUM [Suspect]
     Active Substance: SELENIUM
     Route: 042
     Dates: start: 201803
  24. PHOCYTAN [Suspect]
     Active Substance: .ALPHA.-GLUCOSE-1-PHOSPHATE
     Indication: PARENTERAL NUTRITION
     Route: 042
     Dates: start: 201803
  25. SMOFLIPID [Suspect]
     Active Substance: FISH OIL\MEDIUM-CHAIN TRIGLYCERIDES\OLIVE OIL\SOYBEAN OIL
     Indication: PARENTERAL NUTRITION
     Route: 042
     Dates: start: 201803

REACTIONS (3)
  - Bacterial sepsis [Recovering/Resolving]
  - Lactobacillus test positive [Recovering/Resolving]
  - Device related infection [Recovering/Resolving]

NARRATIVE: CASE EVENT DATE: 20180401
